FAERS Safety Report 5414921-4 (Version None)
Quarter: 2007Q3

REPORT INFORMATION
  Report Type: 
  Country: None (occurrence: None)
  Receive Date: 20070813
  Receipt Date: 20070813
  Transmission Date: 20080115
  Serious: No
  Sender: FDA-Public Use
  Company Number: None

PATIENT
  Sex: Female
  Weight: 90.7194 kg

DRUGS (2)
  1. DEFINITY [Suspect]
     Indication: CHEST PAIN
     Dosage: 1 UNIT (4 CC TOTAL) IV
     Route: 042
     Dates: start: 20070709
  2. DOBUTAMINE HCL [Concomitant]

REACTIONS (1)
  - URTICARIA [None]
